FAERS Safety Report 20654641 (Version 1)
Quarter: 2022Q1

REPORT INFORMATION
  Report Type: Spontaneous
  Country: US (occurrence: None)
  Receive Date: 20220329
  Receipt Date: 20220329
  Transmission Date: 20220423
  Serious: No
  Sender: FDA-Public Use
  Company Number: None

PATIENT
  Age: 46 Year
  Sex: Male
  Weight: 101.6 kg

DRUGS (1)
  1. SIMPONI [Suspect]
     Active Substance: GOLIMUMAB
     Indication: Juvenile idiopathic arthritis
     Dosage: FREQUENCY : MONTHLY;?
     Route: 058
     Dates: start: 202002

REACTIONS (3)
  - Fungal infection [None]
  - Therapy interrupted [None]
  - Immune system disorder [None]
